FAERS Safety Report 6528548-4 (Version None)
Quarter: 2009Q4

REPORT INFORMATION
  Report Type: 
  Country: None (occurrence: None)
  Receive Date: 20091222
  Receipt Date: 20090825
  Transmission Date: 20100525
  Serious: No
  Sender: FDA-Public Use
  Company Number: ALL1-2009-02456

PATIENT
  Age: 12 Year
  Sex: Male
  Weight: 30.8 kg

DRUGS (2)
  1. VYVANSE [Suspect]
     Indication: ATTENTION DEFICIT/HYPERACTIVITY DISORDER
     Dosage: 30 MG, 1X/DAY;QD, ORAL; 20 MG, 1X/DAY;QD, ORAL; 30 MG, 1X/DAY;QD, ORAL
     Route: 048
     Dates: start: 20090801
  2. ZOLOFT /01011401/(SERTRALINE) TABLET [Concomitant]

REACTIONS (2)
  - NAUSEA [None]
  - PRESYNCOPE [None]
